FAERS Safety Report 17125237 (Version 1)
Quarter: 2019Q4

REPORT INFORMATION
  Report Type: Spontaneous
  Country: US (occurrence: US)
  Receive Date: 20191206
  Receipt Date: 20191206
  Transmission Date: 20200122
  Serious: Yes (Other)
  Sender: FDA-Public Use
  Company Number: US-AUROBINDO-AUR-APL-2019-091924

PATIENT
  Age: 32 Year
  Sex: Female

DRUGS (8)
  1. PIPERACILLIN AND TAZOBACTAM [Concomitant]
     Active Substance: PIPERACILLIN SODIUM\TAZOBACTAM SODIUM
     Indication: PNEUMONIA
     Dosage: UNK
     Route: 065
  2. PYRIMETHAMINE [Concomitant]
     Active Substance: PYRIMETHAMINE
     Indication: LYME DISEASE
     Dosage: UNK
     Route: 048
  3. LEUCOVORIN. [Concomitant]
     Active Substance: LEUCOVORIN
     Indication: LYME DISEASE
     Dosage: UNK
     Route: 048
  4. AZITHROMYCIN ANHYDROUS. [Suspect]
     Active Substance: AZITHROMYCIN ANHYDROUS
     Indication: PNEUMONIA
     Dosage: UNK
     Route: 065
  5. VANCOMYCIN [Concomitant]
     Active Substance: VANCOMYCIN
     Indication: PNEUMONIA
     Dosage: UNK
     Route: 065
  6. METRONIDAZOLE. [Suspect]
     Active Substance: METRONIDAZOLE
     Indication: LYME DISEASE
     Dosage: UNK
     Route: 048
  7. RIFABUTIN. [Concomitant]
     Active Substance: RIFABUTIN
     Indication: LYME DISEASE
     Dosage: UNK
     Route: 048
  8. IVERMECTIN. [Concomitant]
     Active Substance: IVERMECTIN
     Indication: LYME DISEASE
     Dosage: UNK
     Route: 048

REACTIONS (1)
  - Mycobacterial infection [Recovered/Resolved]
